FAERS Safety Report 21747276 (Version 1)
Quarter: 2022Q4

REPORT INFORMATION
  Report Type: Report from Study
  Country: US (occurrence: US)
  Receive Date: 20221219
  Receipt Date: 20221219
  Transmission Date: 20230113
  Serious: Yes (Other)
  Sender: FDA-Public Use
  Company Number: US-ABBVIE-4241595

PATIENT
  Sex: Female

DRUGS (4)
  1. HUMIRA [Suspect]
     Active Substance: ADALIMUMAB
     Indication: Crohn^s disease
     Route: 058
  2. Pfizer [Concomitant]
     Indication: COVID-19 immunisation
     Route: 030
     Dates: start: 20210507, end: 20210507
  3. Pfizer [Concomitant]
     Indication: COVID-19 immunisation
     Route: 030
     Dates: start: 20210528, end: 20210528
  4. Pfizer [Concomitant]
     Indication: COVID-19 immunisation
     Route: 030
     Dates: start: 20220127, end: 20220127

REACTIONS (5)
  - Gastric operation [Unknown]
  - Gastric dilatation [Unknown]
  - Post procedural complication [Unknown]
  - Hernia [Unknown]
  - Infection [Unknown]
